FAERS Safety Report 21845659 (Version 1)
Quarter: 2023Q1

REPORT INFORMATION
  Report Type: Spontaneous
  Country: FR (occurrence: FR)
  Receive Date: 20230111
  Receipt Date: 20230111
  Transmission Date: 20230418
  Serious: Yes (Other)
  Sender: FDA-Public Use
  Company Number: None

PATIENT
  Age: 26 Year
  Sex: Male

DRUGS (4)
  1. CLONAZEPAM [Suspect]
     Active Substance: CLONAZEPAM
     Dosage: 8MG/D (2MG X 4 DOSES) (1-1-1-1)??DAILY DOSE: 8 MILLIGRAM
     Route: 048
  2. VALIUM [Suspect]
     Active Substance: DIAZEPAM
     Dosage: 80 MG/D (20 MGX4 DOSES) (2-2-2-2)??DAILY DOSE: 80 MILLIGRAM
     Route: 048
  3. LYRICA [Suspect]
     Active Substance: PREGABALIN
     Dosage: 1.2G/ D (300 MGX4 DOSES) (1-1-1-1)??DAILY DOSE: 1.2 GRAM
     Route: 048
  4. CYAMEMAZINE [Suspect]
     Active Substance: CYAMEMAZINE
     Dosage: 100 MG/D (50MGX2 DOSES) (0-2-2-0)?DAILY DOSE: 100 MILLIGRAM
     Route: 048

REACTIONS (5)
  - Suicidal ideation [Not Recovered/Not Resolved]
  - Agitation [Not Recovered/Not Resolved]
  - Drug dependence [Not Recovered/Not Resolved]
  - Suicidal ideation [Unknown]
  - Agitation [Unknown]

NARRATIVE: CASE EVENT DATE: 20220908
